FAERS Safety Report 10329574 (Version 1)
Quarter: 2014Q3

REPORT INFORMATION
  Report Type: Spontaneous
  Country: FR (occurrence: FR)
  Receive Date: 20140721
  Receipt Date: 20140721
  Transmission Date: 20150326
  Serious: Yes (Hospitalization)
  Sender: FDA-Public Use
  Company Number: FR-PFIZER INC-2014201805

PATIENT
  Age: 70 Year
  Sex: Female

DRUGS (3)
  1. PRADAXA [Concomitant]
     Active Substance: DABIGATRAN ETEXILATE MESYLATE
     Indication: TACHYARRHYTHMIA
     Dosage: 150 MG, 2X/DAY
     Dates: start: 201401
  2. CORDARONE [Suspect]
     Active Substance: AMIODARONE HYDROCHLORIDE
     Indication: TACHYARRHYTHMIA
     Dosage: UNK
     Route: 065
     Dates: start: 201404, end: 201406
  3. SOTALOL. [Concomitant]
     Active Substance: SOTALOL
     Indication: TACHYARRHYTHMIA
     Dosage: 0.5 DF, 2X/DAY, (40 MG)
     Dates: start: 201401, end: 201404

REACTIONS (1)
  - Vascular purpura [Recovering/Resolving]

NARRATIVE: CASE EVENT DATE: 201404
